FAERS Safety Report 17045453 (Version 5)
Quarter: 2020Q1

REPORT INFORMATION
  Report Type: Report from Study
  Country: FR (occurrence: FR)
  Receive Date: 20191118
  Receipt Date: 20200108
  Transmission Date: 20200409
  Serious: Yes (Hospitalization)
  Sender: FDA-Public Use
  Company Number: FR-GILEAD-2019-0437503

PATIENT
  Age: 70 Year
  Sex: Female
  Weight: 56 kg

DRUGS (11)
  1. ZELITREX [Concomitant]
     Active Substance: VALACYCLOVIR HYDROCHLORIDE
  2. PRIMPERAN [Concomitant]
     Active Substance: METOCLOPRAMIDE HYDROCHLORIDE
  3. AUGMENTIN [Concomitant]
     Active Substance: AMOXICILLIN\CLAVULANATE POTASSIUM
     Dosage: UNK
     Dates: start: 20191105
  4. BROMAZEPAM [Concomitant]
     Active Substance: BROMAZEPAM
  5. PARACETAMOL [Concomitant]
     Active Substance: ACETAMINOPHEN
  6. VENLAFAXINE ALMUS [Concomitant]
  7. OFLOXACIN. [Concomitant]
     Active Substance: OFLOXACIN
  8. AXICABTAGENE CILOLEUCEL [Suspect]
     Active Substance: AXICABTAGENE CILOLEUCEL
     Indication: NON-HODGKIN^S LYMPHOMA REFRACTORY
     Dosage: UNK
     Route: 042
     Dates: start: 20190711, end: 20190711
  9. FLUDARABINE [Suspect]
     Active Substance: FLUDARABINE PHOSPHATE
     Indication: BONE MARROW CONDITIONING REGIMEN
     Dosage: 30 MG/M2, QD
     Route: 042
     Dates: start: 20190704, end: 20190706
  10. CYCLOPHOSPHAMIDE. [Suspect]
     Active Substance: CYCLOPHOSPHAMIDE
     Indication: BONE MARROW CONDITIONING REGIMEN
     Dosage: 500 MG/M2, QD
     Route: 042
     Dates: start: 20190704, end: 20190706
  11. ESOMEPRAZOLE. [Concomitant]
     Active Substance: ESOMEPRAZOLE MAGNESIUM

REACTIONS (1)
  - Febrile bone marrow aplasia [Recovered/Resolved]

NARRATIVE: CASE EVENT DATE: 20191112
